FAERS Safety Report 11074308 (Version 1)
Quarter: 2015Q2

REPORT INFORMATION
  Report Type: Spontaneous
  Country: US (occurrence: US)
  Receive Date: 20150429
  Receipt Date: 20150429
  Transmission Date: 20150821
  Serious: Yes (Other)
  Sender: FDA-Public Use
  Company Number: US-BAYER-2015-171244

PATIENT
  Age: 49 Year
  Sex: Female

DRUGS (1)
  1. BETASERON [Suspect]
     Active Substance: INTERFERON BETA-1B
     Indication: MULTIPLE SCLEROSIS
     Dosage: 0.25 MG, QOD
     Dates: start: 2005

REACTIONS (6)
  - Multiple sclerosis relapse [None]
  - Hypoaesthesia [None]
  - Pyrexia [None]
  - Optic neuritis [None]
  - Bladder disorder [None]
  - Restless legs syndrome [Recovered/Resolved]

NARRATIVE: CASE EVENT DATE: 201501
